FAERS Safety Report 7360417-2 (Version None)
Quarter: 2011Q1

REPORT INFORMATION
  Report Type: 
  Country: None (occurrence: None)
  Receive Date: 20110318
  Receipt Date: 20100618
  Transmission Date: 20110831
  Serious: No
  Sender: FDA-Public Use
  Company Number: US-BAYER-201019668NA

PATIENT
  Sex: Female
  Weight: 79.365 kg

DRUGS (4)
  1. YASMIN [Suspect]
     Indication: PREMENSTRUAL SYNDROME
     Dosage: UNK
     Dates: start: 20060101
  2. ZOFRAN [Concomitant]
     Dosage: UNK
     Route: 042
     Dates: start: 20021101, end: 20021101
  3. YASMIN [Suspect]
     Indication: CONTRACEPTION
     Dosage: UNK
     Route: 048
     Dates: start: 20030101, end: 20040101
  4. PROZAC [Concomitant]
     Indication: DEPRESSION

REACTIONS (1)
  - GALLBLADDER PAIN [None]
